FAERS Safety Report 6077440-0 (Version None)
Quarter: 2009Q1

REPORT INFORMATION
  Report Type: 
  Country: None (occurrence: None)
  Receive Date: 20090213
  Receipt Date: 20081117
  Transmission Date: 20090719
  Serious: No
  Sender: FDA-Public Use
  Company Number: A0753512A

PATIENT
  Age: 47 Year
  Sex: Female

DRUGS (2)
  1. TREXIMET [Suspect]
     Indication: MIGRAINE
     Dosage: 1TAB PER DAY
     Route: 048
     Dates: start: 20081016, end: 20081016
  2. NO CONCURRENT MEDICATION [Concomitant]

REACTIONS (7)
  - ANXIETY [None]
  - CHEST PAIN [None]
  - DIZZINESS [None]
  - ERYTHEMA [None]
  - FEELING ABNORMAL [None]
  - NECK PAIN [None]
  - VOMITING [None]
